FAERS Safety Report 4450741-5 (Version None)
Quarter: 2004Q3

REPORT INFORMATION
  Report Type: 
  Country: None (occurrence: None)
  Receive Date: 20040914
  Receipt Date: 20040914
  Transmission Date: 20050211
  Serious: No
  Sender: FDA-Public Use
  Company Number: None

PATIENT
  Age: 50 Year
  Sex: Female

DRUGS (2)
  1. RISPERDAL [Suspect]
     Indication: PSYCHOTIC DISORDER
     Dosage: 4 MG PO HS
     Route: 048
     Dates: start: 20040715, end: 20040729
  2. SEROQUEL [Concomitant]

REACTIONS (1)
  - BLOOD PROLACTIN INCREASED [None]
